FAERS Safety Report 6943658-5 (Version None)
Quarter: 2010Q3

REPORT INFORMATION
  Report Type: 
  Country: None (occurrence: None)
  Receive Date: 20100826
  Receipt Date: 20100823
  Transmission Date: 20110219
  Serious: Yes (Hospitalization)
  Sender: FDA-Public Use
  Company Number: PHHO2010FR10383

PATIENT

DRUGS (2)
  1. CERTICAN [Suspect]
     Indication: HEART TRANSPLANT
     Dosage: 1G/J
     Route: 048
     Dates: start: 20100503, end: 20100619
  2. NEORAL [Suspect]
     Indication: HEART TRANSPLANT
     Dosage: 120/J
     Route: 048
     Dates: start: 19961011

REACTIONS (9)
  - BRONCHITIS [None]
  - ESCHERICHIA INFECTION [None]
  - ESCHERICHIA URINARY TRACT INFECTION [None]
  - HEPATOSPLENOMEGALY [None]
  - MOUTH ULCERATION [None]
  - PORTAL HYPERTENSION [None]
  - PRODUCTIVE COUGH [None]
  - RALES [None]
  - SCROTAL ULCER [None]
